FAERS Safety Report 14987284 (Version 1)
Quarter: 2018Q2

REPORT INFORMATION
  Report Type: Spontaneous
  Country: JP (occurrence: JP)
  Receive Date: 20180608
  Receipt Date: 20180608
  Transmission Date: 20180711
  Serious: Yes (Other)
  Sender: FDA-Public Use
  Company Number: JP-ROCHE-2136560

PATIENT
  Age: 30 Year
  Sex: Male

DRUGS (1)
  1. RIVOTRIL [Suspect]
     Active Substance: CLONAZEPAM
     Indication: EPILEPSY
     Route: 048
     Dates: start: 2017

REACTIONS (4)
  - Muscle spasms [Unknown]
  - Road traffic accident [Unknown]
  - Drug level decreased [Unknown]
  - Bedridden [Unknown]
